FAERS Safety Report 8546414-X (Version None)
Quarter: 2012Q3

REPORT INFORMATION
  Report Type: 
  Country: None (occurrence: None)
  Receive Date: 20120727
  Receipt Date: 20120105
  Transmission Date: 20120928
  Serious: No
  Sender: FDA-Public Use
  Company Number: US-ASTRAZENECA-2012SE01150

PATIENT
  Age: 58 Year
  Sex: Female

DRUGS (4)
  1. TYLENOL PM [Suspect]
     Route: 065
  2. AMITRIPTYLINE HYDROCHLORIDE [Suspect]
     Route: 065
  3. SEROQUEL [Suspect]
     Indication: SLEEP DISORDER
     Route: 048
  4. SEROQUEL [Suspect]
     Indication: HALLUCINATION
     Route: 048

REACTIONS (7)
  - DRUG DOSE OMISSION [None]
  - OFF LABEL USE [None]
  - MIDDLE INSOMNIA [None]
  - ADVERSE EVENT [None]
  - HEADACHE [None]
  - FATIGUE [None]
  - MALAISE [None]
